APPROVED DRUG PRODUCT: NITRONAL
Active Ingredient: NITROGLYCERIN
Strength: 1MG/ML
Dosage Form/Route: INJECTABLE;INJECTION
Application: N018672 | Product #001
Applicant: G POHL BOSKAMP GMBH AND CO
Approved: Aug 30, 1983 | RLD: No | RS: No | Type: DISCN